FAERS Safety Report 12634383 (Version 19)
Quarter: 2019Q1

REPORT INFORMATION
  Report Type: Spontaneous
  Country: BR (occurrence: BR)
  Receive Date: 20160808
  Receipt Date: 20190114
  Transmission Date: 20190417
  Serious: Yes (Hospitalization)
  Sender: FDA-Public Use
  Company Number: BR-GLAXOSMITHKLINE-BR2016GSK086557

PATIENT
  Age: 46 Year
  Sex: Female
  Weight: 78 kg

DRUGS (4)
  1. BENLYSTA [Suspect]
     Active Substance: BELIMUMAB
     Indication: SYSTEMIC LUPUS ERYTHEMATOSUS
     Dosage: UNK
     Dates: start: 20150416
  2. PREDNISONE. [Concomitant]
     Active Substance: PREDNISONE
     Indication: ARTHRITIS
     Dosage: 5 MG, UNK
  3. CALCIUM [Concomitant]
     Active Substance: CALCIUM
     Indication: PRODUCT USED FOR UNKNOWN INDICATION
     Dosage: UNK
  4. VITAMIN D [Concomitant]
     Active Substance: CHOLECALCIFEROL
     Indication: PRODUCT USED FOR UNKNOWN INDICATION
     Dosage: UNK

REACTIONS (17)
  - Inappropriate schedule of product administration [Recovered/Resolved]
  - Circumstance or information capable of leading to medication error [Not Recovered/Not Resolved]
  - Blood pressure decreased [Unknown]
  - Dental caries [Unknown]
  - Urine odour abnormal [Unknown]
  - Underdose [Unknown]
  - Anaemia [Unknown]
  - Product availability issue [Unknown]
  - Overdose [Unknown]
  - Infection [Unknown]
  - Tooth disorder [Unknown]
  - Influenza [Unknown]
  - Product dose omission [Not Recovered/Not Resolved]
  - Depression [Unknown]
  - Sinusitis [Unknown]
  - Urinary tract infection [Unknown]
  - Decreased immune responsiveness [Unknown]

NARRATIVE: CASE EVENT DATE: 20160418
